FAERS Safety Report 18455614 (Version 1)
Quarter: 2020Q4

REPORT INFORMATION
  Report Type: Other
  Country: CA (occurrence: CA)
  Receive Date: 20201102
  Receipt Date: 20201102
  Transmission Date: 20210114
  Serious: Yes (Other)
  Sender: FDA-Public Use
  Company Number: CA-CELLTRION INC.-2020CA029963

PATIENT

DRUGS (17)
  1. FOLIC ACID. [Concomitant]
     Active Substance: FOLIC ACID
  2. METHYLPREDNISOLONE SODIUM SUCCINATE. [Concomitant]
     Active Substance: METHYLPREDNISOLONE SODIUM SUCCINATE
     Indication: PREMEDICATION
     Dosage: 100 MG
     Route: 042
  3. RISEDRONATE [Concomitant]
     Active Substance: RISEDRONATE SODIUM
  4. RITUXIMAB (UNKNOWN) [Suspect]
     Active Substance: RITUXIMAB
     Indication: RHEUMATOID ARTHRITIS
     Dosage: 1000 MG, 1 EVERY 15 DAYS
     Route: 042
  5. PREGABALIN. [Concomitant]
     Active Substance: PREGABALIN
  6. IMIPRAMINE [Concomitant]
     Active Substance: IMIPRAMINE
  7. OLUMIANT [Concomitant]
     Active Substance: BARICITINIB
  8. PREDNISONE. [Concomitant]
     Active Substance: PREDNISONE
  9. BACLOFEN. [Concomitant]
     Active Substance: BACLOFEN
  10. METHOTREXATE. [Concomitant]
     Active Substance: METHOTREXATE
  11. RABEPRAZOLE [Concomitant]
     Active Substance: RABEPRAZOLE
  12. ULTRAM [Concomitant]
     Active Substance: TRAMADOL HYDROCHLORIDE
  13. BENADRYL [Concomitant]
     Active Substance: DIPHENHYDRAMINE HYDROCHLORIDE
     Indication: PREMEDICATION
     Dosage: 50 MG
     Route: 048
  14. ROSUVASTATIN. [Concomitant]
     Active Substance: ROSUVASTATIN
  15. TYLENOL [Concomitant]
     Active Substance: ACETAMINOPHEN
     Indication: PREMEDICATION
     Dosage: 650 MG
     Route: 048
  16. LISINOPRIL. [Concomitant]
     Active Substance: LISINOPRIL
  17. TRIMETHOPRIM. [Concomitant]
     Active Substance: TRIMETHOPRIM

REACTIONS (3)
  - Blood iron decreased [Not Recovered/Not Resolved]
  - Off label use [Unknown]
  - Arthritis infective [Not Recovered/Not Resolved]
